FAERS Safety Report 18025051 (Version 4)
Quarter: 2021Q2

REPORT INFORMATION
  Report Type: Spontaneous
  Country: US (occurrence: US)
  Receive Date: 20200715
  Receipt Date: 20210628
  Transmission Date: 20210717
  Serious: No
  Sender: FDA-Public Use
  Company Number: US-PFIZER INC-2020270476

PATIENT
  Age: 82 Year
  Sex: Female
  Weight: 54.42 kg

DRUGS (1)
  1. XELJANZ XR [Suspect]
     Active Substance: TOFACITINIB CITRATE
     Dosage: 11 MG, DAILY

REACTIONS (4)
  - Osteoporosis [Unknown]
  - Memory impairment [Unknown]
  - Malaise [Unknown]
  - Nervousness [Unknown]
